FAERS Safety Report 9613447 (Version 3)
Quarter: 2013Q4

REPORT INFORMATION
  Report Type: Spontaneous
  Country: US (occurrence: US)
  Receive Date: 20131010
  Receipt Date: 20131107
  Transmission Date: 20140711
  Serious: No
  Sender: FDA-Public Use
  Company Number: US-PFIZER INC-2013287859

PATIENT
  Age: 53 Year
  Sex: Female

DRUGS (2)
  1. CLEOCIN [Suspect]
     Dosage: UNK
  2. DEMEROL [Suspect]
     Dosage: UNK

REACTIONS (1)
  - Drug hypersensitivity [Unknown]
